FAERS Safety Report 15657027 (Version 1)
Quarter: 2018Q4

REPORT INFORMATION
  Report Type: Spontaneous
  Country: US (occurrence: US)
  Receive Date: 20181126
  Receipt Date: 20181126
  Transmission Date: 20190205
  Serious: Yes (Other)
  Sender: FDA-Public Use
  Company Number: PHHY2018US158372

PATIENT
  Age: 49 Year
  Sex: Male

DRUGS (7)
  1. HALOPERIDOL. [Interacting]
     Active Substance: HALOPERIDOL
     Indication: MENTAL DISORDER
     Route: 065
  2. TRAZODONE [Interacting]
     Active Substance: TRAZODONE HYDROCHLORIDE
     Indication: MENTAL DISORDER
     Route: 065
  3. GABAPENTIN. [Interacting]
     Active Substance: GABAPENTIN
     Indication: MENTAL DISORDER
     Dosage: UNK
     Route: 065
  4. BUPIVACAINE. [Interacting]
     Active Substance: BUPIVACAINE
     Indication: SPINAL ANAESTHESIA
     Route: 065
  5. LITHIUM. [Interacting]
     Active Substance: LITHIUM
     Indication: MENTAL DISORDER
     Dosage: UNK
     Route: 065
  6. BUPROPION. [Suspect]
     Active Substance: BUPROPION
     Indication: MENTAL DISORDER
     Dosage: UNK
     Route: 065
  7. FLUOXETINE [Interacting]
     Active Substance: FLUOXETINE HYDROCHLORIDE
     Indication: MENTAL DISORDER
     Dosage: UNK
     Route: 065

REACTIONS (12)
  - Blood creatine phosphokinase increased [Unknown]
  - Bradycardia [Recovering/Resolving]
  - Serotonin syndrome [Recovering/Resolving]
  - Myoclonus [Recovering/Resolving]
  - Hypertension [Recovered/Resolved]
  - Autonomic nervous system imbalance [Recovering/Resolving]
  - Tachycardia [Recovering/Resolving]
  - Myoglobin blood increased [Unknown]
  - Diarrhoea [Recovered/Resolved]
  - Mental status changes [Recovering/Resolving]
  - Drug interaction [Unknown]
  - Pyrexia [Recovering/Resolving]
